FAERS Safety Report 7011872-9 (Version None)
Quarter: 2010Q3

REPORT INFORMATION
  Report Type: 
  Country: None (occurrence: None)
  Receive Date: 20100924
  Receipt Date: 20100910
  Transmission Date: 20110219
  Serious: Yes (Other)
  Sender: FDA-Public Use
  Company Number: GB-MYLANLABS-2010S1016658

PATIENT
  Age: 49 Year
  Sex: Female

DRUGS (5)
  1. AMISULPRIDE [Suspect]
     Indication: SCHIZOPHRENIA
  2. LAMOTRIGINE [Suspect]
     Indication: SCHIZOPHRENIA
  3. PAROXETINE HCL [Suspect]
     Indication: DEPRESSION
  4. CLOZARIL [Suspect]
     Indication: PRODUCT USED FOR UNKNOWN INDICATION
     Route: 048
     Dates: start: 20050207
  5. RAMIPRIL [Suspect]
     Indication: BLOOD PRESSURE

REACTIONS (2)
  - BREAST ABSCESS [None]
  - BREAST CANCER [None]
